FAERS Safety Report 9791457 (Version 1)
Quarter: 2014Q1

REPORT INFORMATION
  Report Type: Report from Study
  Country: MX (occurrence: MX)
  Receive Date: 20140101
  Receipt Date: 20140101
  Transmission Date: 20141002
  Serious: Yes (Death)
  Sender: FDA-Public Use
  Company Number: PHHY2013MX153723

PATIENT
  Age: 79 Year
  Sex: Male

DRUGS (1)
  1. CO-DIOVAN [Suspect]
     Indication: HYPERTENSION
     Dosage: UKN (320 MG VALS, 25 MG HYDR)
     Route: 048

REACTIONS (1)
  - Death [Fatal]
